FAERS Safety Report 22220122 (Version 1)
Quarter: 2023Q2

REPORT INFORMATION
  Report Type: Report from Study
  Country: AR (occurrence: AR)
  Receive Date: 20230417
  Receipt Date: 20230417
  Transmission Date: 20230722
  Serious: Yes (Disabling)
  Sender: FDA-Public Use
  Company Number: AR-JNJFOC-20230416232

PATIENT
  Age: 6 Year
  Sex: Female
  Weight: 32.8 kg

DRUGS (7)
  1. ERDAFITINIB [Suspect]
     Active Substance: ERDAFITINIB
     Indication: Glioma
     Route: 048
     Dates: start: 20230210, end: 20230223
  2. ERDAFITINIB [Suspect]
     Active Substance: ERDAFITINIB
     Route: 048
     Dates: start: 20230224, end: 20230301
  3. ERDAFITINIB [Suspect]
     Active Substance: ERDAFITINIB
     Route: 048
     Dates: start: 20230303, end: 20230309
  4. ERDAFITINIB [Suspect]
     Active Substance: ERDAFITINIB
     Route: 048
     Dates: start: 20230310, end: 20230405
  5. LEVETIRACETAM [Concomitant]
     Active Substance: LEVETIRACETAM
     Indication: Seizure prophylaxis
     Dates: start: 2020
  6. CLOBAZAM [Concomitant]
     Active Substance: CLOBAZAM
     Indication: Seizure prophylaxis
     Dates: start: 2020
  7. CANNABIDIOL [Concomitant]
     Active Substance: CANNABIDIOL
     Indication: Seizure prophylaxis
     Dates: start: 2020

REACTIONS (1)
  - Neuropathy peripheral [Recovering/Resolving]

NARRATIVE: CASE EVENT DATE: 20230330
